FAERS Safety Report 6171375-0 (Version None)
Quarter: 2009Q2

REPORT INFORMATION
  Report Type: 
  Country: None (occurrence: None)
  Receive Date: 20090429
  Receipt Date: 20090417
  Transmission Date: 20091009
  Serious: Yes (Death, Life-Threatening, Hospitalization, Other)
  Sender: FDA-Public Use
  Company Number: JP-PFIZER INC-2009194781

PATIENT

DRUGS (12)
  1. ZYVOX [Suspect]
     Indication: PNEUMONIA STAPHYLOCOCCAL
     Dosage: 600 MG, 2X/DAY
     Route: 042
     Dates: start: 20090317, end: 20090322
  2. HUMULIN R [Concomitant]
     Route: 042
  3. SOLU-MEDROL [Concomitant]
     Route: 042
  4. HEPARIN SODIUM [Concomitant]
     Route: 042
  5. CATABON [Concomitant]
     Route: 042
  6. AMPICILLIN SODIUM/SULBACTAM SODIUM [Concomitant]
     Route: 042
  7. LASIX [Concomitant]
     Route: 042
  8. OMEPRAL [Concomitant]
     Route: 048
  9. THYRADIN S [Concomitant]
     Route: 048
  10. CORTRIL [Concomitant]
     Route: 048
  11. AMPHOTERICIN B [Concomitant]
     Route: 048
  12. KLARICID [Concomitant]
     Route: 048

REACTIONS (3)
  - PANCYTOPENIA [None]
  - STAPHYLOCOCCAL SEPSIS [None]
  - THROMBOCYTOPENIA [None]
